FAERS Safety Report 25933102 (Version 1)
Quarter: 2025Q4

REPORT INFORMATION
  Report Type: Spontaneous
  Country: US (occurrence: US)
  Receive Date: 20251017
  Receipt Date: 20251017
  Transmission Date: 20260118
  Serious: Yes (Hospitalization, Other)
  Sender: PACIRA
  Company Number: US-ORG100016242-2025000407

PATIENT
  Age: 68 Year
  Sex: Female

DRUGS (2)
  1. EXPAREL [Suspect]
     Active Substance: BUPIVACAINE
     Indication: Spinal operation
  2. SALINE [Suspect]
     Active Substance: SODIUM CHLORIDE
     Indication: Spinal operation

REACTIONS (4)
  - Brain death [Unknown]
  - Seizure [Unknown]
  - Cardiac arrest [Unknown]
  - Hypotension [Recovered/Resolved]
